FAERS Safety Report 20466501 (Version 3)
Quarter: 2022Q1

REPORT INFORMATION
  Report Type: Spontaneous
  Country: JP (occurrence: JP)
  Receive Date: 20220213
  Receipt Date: 20220321
  Transmission Date: 20220424
  Serious: Yes (Hospitalization, Other)
  Sender: FDA-Public Use
  Company Number: JP-AMGEN-JPNSP2021199539

PATIENT
  Age: 72 Year
  Sex: Female
  Weight: 46 kg

DRUGS (4)
  1. EVENITY [Suspect]
     Active Substance: ROMOSOZUMAB-AQQG
     Indication: Osteoporosis
     Dosage: 210 MILLIGRAM
     Route: 058
     Dates: start: 20210120, end: 20211208
  2. LOXOPROFEN SODIUM DIHYDRATE [Concomitant]
     Active Substance: LOXOPROFEN SODIUM DIHYDRATE
     Indication: Back pain
     Dosage: 60 MILLIGRAM, TID
     Dates: start: 20181227
  3. REBAMIPIDE [Concomitant]
     Active Substance: REBAMIPIDE
     Indication: Back pain
     Dosage: 100 MILLIGRAM, TID
     Dates: start: 20181227
  4. KETOPROFEN [Concomitant]
     Active Substance: KETOPROFEN
     Indication: Back pain
     Dosage: 40 MILLIGRAM, QD
     Dates: start: 20190417

REACTIONS (2)
  - Lung neoplasm malignant [Unknown]
  - Cerebral thrombosis [Recovered/Resolved]

NARRATIVE: CASE EVENT DATE: 20211121
